FAERS Safety Report 7232763-4 (Version None)
Quarter: 2011Q1

REPORT INFORMATION
  Report Type: 
  Country: None (occurrence: None)
  Receive Date: 20110119
  Receipt Date: 20110114
  Transmission Date: 20110831
  Serious: Yes (Other)
  Sender: FDA-Public Use
  Company Number: TW-PFIZER INC-2010182272

PATIENT
  Age: 58 Year
  Sex: Male

DRUGS (2)
  1. VIAGRA [Suspect]
     Indication: ERECTILE DYSFUNCTION
     Dosage: 50 MG, UNK
     Route: 048
  2. VIAGRA [Suspect]
     Dosage: 75 MG, UNK
     Route: 048

REACTIONS (7)
  - RASH [None]
  - HEADACHE [None]
  - FLUSHING [None]
  - ASPARTATE AMINOTRANSFERASE INCREASED [None]
  - GAMMA-GLUTAMYLTRANSFERASE INCREASED [None]
  - FATIGUE [None]
  - ALANINE AMINOTRANSFERASE INCREASED [None]
